FAERS Safety Report 5744770-9 (Version None)
Quarter: 2008Q2

REPORT INFORMATION
  Report Type: 
  Country: None (occurrence: None)
  Receive Date: 20080520
  Receipt Date: 20080508
  Transmission Date: 20081010
  Serious: Yes (Other)
  Sender: FDA-Public Use
  Company Number: GB-PFIZER INC-2008035135

PATIENT
  Sex: Male
  Weight: 37.9 kg

DRUGS (5)
  1. EPANUTIN SUSPENSION [Suspect]
     Indication: EPILEPSY
     Route: 048
  2. CARBAMAZEPINE [Concomitant]
  3. CHLORAL HYDRATE [Concomitant]
     Route: 048
  4. OMEPRAZOLE [Concomitant]
     Route: 048
  5. NEOCATE [Concomitant]

REACTIONS (3)
  - AGITATION [None]
  - INSOMNIA [None]
  - PSYCHOMOTOR HYPERACTIVITY [None]
